FAERS Safety Report 4524584-8 (Version None)
Quarter: 2004Q4

REPORT INFORMATION
  Report Type: 
  Country: None (occurrence: None)
  Receive Date: 20041117
  Receipt Date: 20040730
  Transmission Date: 20050328
  Serious: Yes (Hospitalization)
  Sender: FDA-Public Use
  Company Number: US-JNJFOC-20040701353

PATIENT
  Age: 76 Year
  Sex: Male
  Weight: 84.8226 kg

DRUGS (6)
  1. LEVAQUIN [Suspect]
     Indication: RHINITIS
     Dosage: 500 MG, 1 IN 1 DAY, ORAL
     Route: 048
     Dates: start: 20040201, end: 20040201
  2. LEVAQUIN [Suspect]
     Indication: RHINITIS
     Dosage: 500 MG, 1 IN 1 DAY, ORAL
     Route: 048
     Dates: start: 20040401, end: 20040401
  3. GLYBURIDE [Concomitant]
  4. LISINOPRIL [Concomitant]
  5. VERAPAMIL [Concomitant]
  6. LASIX [Concomitant]

REACTIONS (3)
  - ARTHRALGIA [None]
  - DRUG INEFFECTIVE [None]
  - HYPERGLYCAEMIA [None]
